FAERS Safety Report 4953815-5 (Version None)
Quarter: 2006Q1

REPORT INFORMATION
  Report Type: 
  Country: None (occurrence: None)
  Receive Date: 20060321
  Receipt Date: 20060313
  Transmission Date: 20060701
  Serious: Yes (Other)
  Sender: FDA-Public Use
  Company Number: S06-USA-01093-01

PATIENT
  Age: 57 Year
  Sex: Female

DRUGS (3)
  1. THYROID TAB [Suspect]
     Indication: HYPOTHYROIDISM
     Dosage: 180 MG QD PO
     Route: 048
     Dates: start: 20030301
  2. THYROID TAB [Suspect]
     Indication: HYPOTHYROIDISM
     Dosage: 180 MG QD PO
     Route: 048
     Dates: end: 20060310
  3. THYROID TAB [Suspect]
     Indication: HYPOTHYROIDISM
     Dosage: 30 MG QD PO
     Route: 048
     Dates: start: 20060313

REACTIONS (8)
  - DERMATITIS CONTACT [None]
  - FREQUENT BOWEL MOVEMENTS [None]
  - HEART RATE IRREGULAR [None]
  - NOCTURIA [None]
  - PSYCHOMOTOR HYPERACTIVITY [None]
  - SQUAMOUS CELL CARCINOMA OF SKIN [None]
  - URINARY INCONTINENCE [None]
  - WEIGHT INCREASED [None]
